FAERS Safety Report 18433892 (Version 2)
Quarter: 2020Q4

REPORT INFORMATION
  Report Type: Spontaneous
  Country: CA (occurrence: CA)
  Receive Date: 20201027
  Receipt Date: 20201030
  Transmission Date: 20210114
  Serious: Yes (Other)
  Sender: FDA-Public Use
  Company Number: CA-PFIZER INC-2019503153

PATIENT
  Age: 72 Year
  Sex: Female

DRUGS (7)
  1. XELJANZ [Suspect]
     Active Substance: TOFACITINIB CITRATE
     Dosage: 5 MG, 2X/DAY
     Route: 048
     Dates: start: 201912
  2. XELJANZ [Suspect]
     Active Substance: TOFACITINIB CITRATE
     Indication: COLITIS ULCERATIVE
     Dosage: 10 MG, 2X/DAY
     Route: 048
     Dates: start: 20191008, end: 201912
  3. CORTIMENT [BUDESONIDE] [Concomitant]
     Active Substance: BUDESONIDE
     Indication: COLITIS ULCERATIVE
     Dosage: UNK
  4. ASACOL [Concomitant]
     Active Substance: MESALAMINE
     Indication: COLITIS ULCERATIVE
     Dosage: UNK
  5. SALOFALK [MESALAZINE] [Concomitant]
     Active Substance: MESALAMINE
     Indication: COLITIS ULCERATIVE
     Dosage: UNK, AS NEEDED (PRN)
     Route: 054
  6. FOLIC ACID. [Concomitant]
     Active Substance: FOLIC ACID
     Dosage: 5 MG, WEEKLY
  7. METHOTREXATE. [Concomitant]
     Active Substance: METHOTREXATE
     Indication: COLITIS ULCERATIVE
     Dosage: 25 MG, WEEKLY

REACTIONS (20)
  - Haemoglobin abnormal [Unknown]
  - Symptom recurrence [Unknown]
  - Emotional distress [Unknown]
  - Dyspnoea [Unknown]
  - Infection [Unknown]
  - Hypertension [Unknown]
  - Nasal congestion [Unknown]
  - Irritable bowel syndrome [Unknown]
  - Diarrhoea [Unknown]
  - Sinusitis [Unknown]
  - Peripheral swelling [Not Recovered/Not Resolved]
  - C-reactive protein increased [Unknown]
  - Asthenia [Unknown]
  - Drug ineffective [Unknown]
  - Rash erythematous [Unknown]
  - Change of bowel habit [Not Recovered/Not Resolved]
  - Impaired quality of life [Unknown]
  - Muscle spasms [Unknown]
  - Rectal haemorrhage [Recovering/Resolving]
  - Rash pruritic [Unknown]

NARRATIVE: CASE EVENT DATE: 2019
